FAERS Safety Report 6992139-1 (Version None)
Quarter: 2010Q3

REPORT INFORMATION
  Report Type: 
  Country: None (occurrence: None)
  Receive Date: 20100917
  Receipt Date: 20100906
  Transmission Date: 20110219
  Serious: Yes (Hospitalization)
  Sender: FDA-Public Use
  Company Number: JP-SANOFI-AVENTIS-2010SA053520

PATIENT
  Age: 60 Year
  Sex: Male

DRUGS (9)
  1. ELPLAT [Suspect]
     Indication: RECTAL CANCER RECURRENT
     Route: 042
     Dates: start: 20100114, end: 20100114
  2. CALCIUM LEVOFOLINATE [Suspect]
     Indication: RECTAL CANCER RECURRENT
     Route: 042
     Dates: start: 20100114, end: 20100114
  3. FLUOROURACIL [Suspect]
     Indication: RECTAL CANCER RECURRENT
     Route: 042
     Dates: start: 20100114, end: 20100116
  4. AVASTIN [Suspect]
     Indication: RECTAL CANCER RECURRENT
     Route: 042
     Dates: start: 20100114, end: 20100114
  5. GRANISETRON HCL [Concomitant]
     Dates: start: 20100114, end: 20100114
  6. PRIMPERAN TAB [Concomitant]
     Dates: start: 20100115, end: 20100115
  7. OXYCONTIN [Concomitant]
     Dates: start: 20100115
  8. LOXONIN [Concomitant]
     Dates: start: 20100113
  9. MUCOSTA [Concomitant]
     Dates: start: 20100113

REACTIONS (2)
  - FASCIITIS [None]
  - RECTAL PERFORATION [None]
